FAERS Safety Report 9913581 (Version 3)
Quarter: 2014Q2

REPORT INFORMATION
  Report Type: Spontaneous
  Country: US (occurrence: US)
  Receive Date: 20140220
  Receipt Date: 20140401
  Transmission Date: 20141212
  Serious: Yes (Other)
  Sender: FDA-Public Use
  Company Number: US-OTSUKA-US-2014-10255

PATIENT
  Age: 42 Year
  Sex: Male
  Weight: 136.51 kg

DRUGS (4)
  1. ABILIFY MAINTENA [Suspect]
     Indication: SCHIZOAFFECTIVE DISORDER
     Dosage: 400 MG MILLIGRAM(S), QM
     Route: 030
     Dates: start: 20130920, end: 20140203
  2. LEXAPRO [Concomitant]
     Indication: PRODUCT USED FOR UNKNOWN INDICATION
     Dosage: 20 MG MILLIGRAM(S), QD
  3. DEPAKOTE [Concomitant]
     Indication: PRODUCT USED FOR UNKNOWN INDICATION
     Dosage: 2000 MG MILLIGRAM(S), QHS
  4. TRAZODONE [Concomitant]
     Indication: PRODUCT USED FOR UNKNOWN INDICATION
     Dosage: 300 MG MILLIGRAM(S), QHS

REACTIONS (4)
  - Hallucination, auditory [Unknown]
  - Injection site pain [Unknown]
  - Drug ineffective [Unknown]
  - Off label use [Recovered/Resolved]
